FAERS Safety Report 24187137 (Version 1)
Quarter: 2024Q3

REPORT INFORMATION
  Report Type: Spontaneous
  Country: PT (occurrence: PT)
  Receive Date: 20240808
  Receipt Date: 20240808
  Transmission Date: 20241017
  Serious: Yes (Other)
  Sender: AUROBINDO
  Company Number: PT-INFARMED-B202407-441

PATIENT
  Age: 62 Year
  Sex: Female

DRUGS (3)
  1. IBUPROFEN [Suspect]
     Active Substance: IBUPROFEN
     Indication: Dental discomfort
     Dosage: 600 MILLIGRAM, 3 TIMES A DAY
     Route: 048
     Dates: start: 20221128, end: 20221130
  2. AZITHROMYCIN [Suspect]
     Active Substance: AZITHROMYCIN
     Indication: Dental discomfort
     Dosage: 500 MILLIGRAM, ONCE A DAY
     Route: 048
     Dates: start: 20221128, end: 20221130
  3. CIANOCOBALAMINA [Concomitant]
     Indication: Product used for unknown indication
     Dosage: 1 MILLIGRAM, ONCE A DAY
     Route: 048

REACTIONS (2)
  - Rash erythematous [Recovered/Resolved]
  - Oedema [Recovered/Resolved]

NARRATIVE: CASE EVENT DATE: 20221130
